FAERS Safety Report 22197963 (Version 1)
Quarter: 2023Q2

REPORT INFORMATION
  Report Type: Spontaneous
  Country: US (occurrence: None)
  Receive Date: 20230408
  Receipt Date: 20230408
  Transmission Date: 20230721
  Serious: No
  Sender: FDA-Public Use
  Company Number: None

PATIENT
  Sex: Female

DRUGS (1)
  1. KISQALI [Suspect]
     Active Substance: RIBOCICLIB
     Route: 048

REACTIONS (5)
  - Chest pain [None]
  - Back pain [None]
  - Nausea [None]
  - Hypophagia [None]
  - Pulmonary oedema [None]
